FAERS Safety Report 22336801 (Version 1)
Quarter: 2023Q2

REPORT INFORMATION
  Report Type: Spontaneous
  Country: US (occurrence: None)
  Receive Date: 20230518
  Receipt Date: 20230518
  Transmission Date: 20230721
  Serious: Yes (Other)
  Sender: FDA-Public Use
  Company Number: US-ROCHE-3203117

PATIENT
  Sex: Female

DRUGS (3)
  1. ACTEMRA [Suspect]
     Active Substance: TOCILIZUMAB
     Indication: Rheumatoid arthritis
     Route: 058
     Dates: start: 202207
  2. ACTEMRA [Suspect]
     Active Substance: TOCILIZUMAB
  3. PNEUMOCOCCAL VACCINE POLYVALENT [Suspect]
     Active Substance: PNEUMOCOCCAL VACCINE POLYVALENT
     Indication: Product used for unknown indication
     Route: 065
     Dates: start: 20220805, end: 20220805

REACTIONS (4)
  - Product dose omission issue [Unknown]
  - Device issue [Unknown]
  - Pneumonia [Recovered/Resolved]
  - Drug ineffective [Unknown]

NARRATIVE: CASE EVENT DATE: 20220824
